FAERS Safety Report 14995095 (Version 1)
Quarter: 2018Q2

REPORT INFORMATION
  Report Type: Spontaneous
  Country: US (occurrence: US)
  Receive Date: 20180611
  Receipt Date: 20180611
  Transmission Date: 20180711
  Serious: No
  Sender: FDA-Public Use
  Company Number: US-GLAXOSMITHKLINE-US2018100141

PATIENT
  Age: 22 Year

DRUGS (1)
  1. FLONASE SENSIMIST ALLERGY RELIEF [Suspect]
     Active Substance: FLUTICASONE FUROATE
     Indication: PRODUCT USED FOR UNKNOWN INDICATION
     Dosage: UNK

REACTIONS (5)
  - Depressed mood [Unknown]
  - Nasal congestion [Unknown]
  - Condition aggravated [Unknown]
  - Anosmia [Unknown]
  - Increased viscosity of upper respiratory secretion [Unknown]
